FAERS Safety Report 6515873-6 (Version None)
Quarter: 2009Q4

REPORT INFORMATION
  Report Type: 
  Country: None (occurrence: None)
  Receive Date: 20091211
  Receipt Date: 20090730
  Transmission Date: 20100525
  Serious: Yes (Other)
  Sender: FDA-Public Use
  Company Number: ALL1-2009-02100

PATIENT
  Age: 19 Year
  Sex: Female

DRUGS (3)
  1. ADDERALL XR 10 [Suspect]
     Dosage: 10; 20; 30 MG, 1X/DAY:QD, ORAL
     Route: 048
     Dates: start: 20090701, end: 20090701
  2. ADDERALL XR 10 [Suspect]
     Dosage: 10; 20; 30 MG, 1X/DAY:QD, ORAL
     Route: 048
     Dates: start: 20090701, end: 20090701
  3. ADDERALL XR 10 [Suspect]
     Dosage: 10; 20; 30 MG, 1X/DAY:QD, ORAL
     Route: 048
     Dates: start: 20090701, end: 20090701

REACTIONS (1)
  - DYSPNOEA [None]
